FAERS Safety Report 18482645 (Version 1)
Quarter: 2020Q4

REPORT INFORMATION
  Report Type: Spontaneous
  Country: US (occurrence: US)
  Receive Date: 20201109
  Receipt Date: 20201109
  Transmission Date: 20210114
  Serious: No
  Sender: FDA-Public Use
  Company Number: US-ALLERGAN-2003712US

PATIENT
  Sex: Female

DRUGS (1)
  1. LO LOESTRIN FE [Suspect]
     Active Substance: ETHINYL ESTRADIOL\NORETHINDRONE ACETATE
     Indication: MENOPAUSAL SYMPTOMS
     Dosage: UNK
     Route: 048
     Dates: start: 20200119

REACTIONS (3)
  - Nausea [Not Recovered/Not Resolved]
  - Dizziness [Not Recovered/Not Resolved]
  - Off label use [Unknown]

NARRATIVE: CASE EVENT DATE: 202001
